FAERS Safety Report 6326319-5 (Version None)
Quarter: 2009Q3

REPORT INFORMATION
  Report Type: 
  Country: None (occurrence: None)
  Receive Date: 20090821
  Receipt Date: 20090812
  Transmission Date: 20100115
  Serious: No
  Sender: FDA-Public Use
  Company Number: SPI200900230

PATIENT
  Age: 28 Year
  Sex: Female
  Weight: 59.9 kg

DRUGS (4)
  1. AMITIZA [Suspect]
     Indication: CONSTIPATION
     Dosage: 24 MCG, BID, ORAL ; 24 MCG, BID, ORAL
     Route: 048
  2. VYVANSE [Concomitant]
  3. MIRENA [Concomitant]
  4. PHENTERMINE HCL [Concomitant]

REACTIONS (4)
  - CHEST PAIN [None]
  - CONDITION AGGRAVATED [None]
  - CONSTIPATION [None]
  - DYSPNOEA [None]
